FAERS Safety Report 10997335 (Version 1)
Quarter: 2015Q2

REPORT INFORMATION
  Report Type: Spontaneous
  Country: US (occurrence: None)
  Receive Date: 20150407
  Receipt Date: 20150407
  Transmission Date: 20150821
  Serious: Yes (Hospitalization)
  Sender: FDA-Public Use
  Company Number: None

PATIENT
  Age: 57 Year
  Sex: Female
  Weight: 104.33 kg

DRUGS (1)
  1. LEVOFLOXACIN. [Suspect]
     Active Substance: LEVOFLOXACIN
     Indication: PNEUMONIA
     Route: 048
     Dates: start: 20150108, end: 20150113

REACTIONS (5)
  - Restless legs syndrome [None]
  - Drug ineffective [None]
  - International normalised ratio increased [None]
  - Insomnia [None]
  - Blood glucose increased [None]

NARRATIVE: CASE EVENT DATE: 20150108
